FAERS Safety Report 17553434 (Version 2)
Quarter: 2020Q1

REPORT INFORMATION
  Report Type: Spontaneous
  Country: MM (occurrence: MM)
  Receive Date: 20200317
  Receipt Date: 20200318
  Transmission Date: 20200409
  Serious: Yes (Hospitalization)
  Sender: FDA-Public Use
  Company Number: MM-JNJFOC-20200308351

PATIENT
  Age: 50 Year
  Sex: Female
  Weight: 36 kg

DRUGS (23)
  1. FERROVIT                           /00023501/ [Concomitant]
     Indication: ANAEMIA
     Route: 048
     Dates: start: 20180709
  2. GABAPENTIN. [Concomitant]
     Active Substance: GABAPENTIN
     Indication: SUPPORTIVE CARE
     Route: 048
     Dates: start: 20200219
  3. AMOXICILLIN TRIHYDRATE [Suspect]
     Active Substance: AMOXICILLIN
     Indication: TUBERCULOSIS
     Route: 065
     Dates: start: 20180813
  4. CITALOPRAM [Concomitant]
     Active Substance: CITALOPRAM HYDROBROMIDE
     Indication: MENTAL DISORDER
     Dates: start: 20191017
  5. BEDAQUILINE [Suspect]
     Active Substance: BEDAQUILINE
     Indication: TUBERCULOSIS
     Route: 048
     Dates: start: 20180813, end: 20200225
  6. PYRAZINAMIDE. [Suspect]
     Active Substance: PYRAZINAMIDE
     Indication: TUBERCULOSIS
     Route: 065
     Dates: start: 20180813, end: 20200221
  7. MIXTARD                            /00806401/ [Concomitant]
     Active Substance: INSULIN HUMAN
     Indication: DIABETES MELLITUS
     Dosage: 18 UNITS
     Route: 058
     Dates: start: 20200218
  8. SALBUTAMOL [Concomitant]
     Active Substance: ALBUTEROL
     Indication: SUPPORTIVE CARE
     Dates: start: 20200218
  9. HYDROCORTISONE. [Concomitant]
     Active Substance: HYDROCORTISONE
     Indication: SUPPORTIVE CARE
     Route: 042
     Dates: start: 20200218
  10. ASPRIN [Concomitant]
     Active Substance: ASPIRIN
     Indication: CARDIAC FAILURE CONGESTIVE
     Route: 048
     Dates: start: 20200218
  11. NITROL                             /00003201/ [Concomitant]
     Indication: CARDIAC FAILURE CONGESTIVE
     Route: 060
     Dates: start: 20200219
  12. AMLODIPINE [Concomitant]
     Active Substance: AMLODIPINE BESYLATE
     Indication: HYPERTENSION
     Route: 048
     Dates: start: 20180622
  13. CLOPILET                           /01220701/ [Concomitant]
     Indication: CARDIAC FAILURE CONGESTIVE
     Route: 048
     Dates: start: 20200218
  14. CLOFAZIMINE [Suspect]
     Active Substance: CLOFAZIMINE
     Indication: TUBERCULOSIS
     Route: 065
     Dates: start: 20180813, end: 20200225
  15. LIVOLIN FORTE [Concomitant]
     Indication: SUPPORTIVE CARE
     Route: 048
     Dates: start: 20200218
  16. LINEZOLID. [Suspect]
     Active Substance: LINEZOLID
     Indication: TUBERCULOSIS
     Route: 065
     Dates: start: 20180813, end: 20181108
  17. GLARVIA [Concomitant]
     Indication: DIABETES MELLITUS
     Dosage: 16 UNITS
     Route: 058
     Dates: start: 20200218
  18. FRUSEMIDE                          /00032601/ [Concomitant]
     Active Substance: FUROSEMIDE
     Indication: CHRONIC KIDNEY DISEASE
     Route: 042
     Dates: start: 20200218, end: 20200226
  19. DELAMANID [Suspect]
     Active Substance: DELAMANID
     Indication: TUBERCULOSIS
     Route: 065
     Dates: start: 20180813, end: 20200225
  20. NEWPENEM [Suspect]
     Active Substance: CILASTATIN SODIUM\IMIPENEM
     Indication: TUBERCULOSIS
     Route: 065
     Dates: start: 20180813, end: 20190823
  21. FRUSEMIDE                          /00032601/ [Concomitant]
     Active Substance: FUROSEMIDE
     Route: 048
     Dates: start: 20200226
  22. ARIPEN [Concomitant]
     Indication: MENTAL DISORDER
     Route: 048
     Dates: start: 20191017
  23. MIRTAZAPINE. [Concomitant]
     Active Substance: MIRTAZAPINE
     Indication: MENTAL DISORDER
     Route: 048
     Dates: start: 20191017

REACTIONS (5)
  - Electrocardiogram QT prolonged [Unknown]
  - Off label use [Unknown]
  - Chronic kidney disease [Unknown]
  - Intentional product use issue [Unknown]
  - Incorrect dose administered [Unknown]

NARRATIVE: CASE EVENT DATE: 20191114
